FAERS Safety Report 16412433 (Version 1)
Quarter: 2019Q2

REPORT INFORMATION
  Report Type: Spontaneous
  Country: US (occurrence: US)
  Receive Date: 20190610
  Receipt Date: 20190610
  Transmission Date: 20190711
  Serious: No
  Sender: FDA-Public Use
  Company Number: US-AMGEN-USASP2019090821

PATIENT

DRUGS (1)
  1. AIMOVIG [Suspect]
     Active Substance: ERENUMAB-AOOE
     Indication: MIGRAINE
     Dosage: UNK
     Route: 065

REACTIONS (8)
  - Rash [Unknown]
  - Acne [Unknown]
  - Anxiety [Unknown]
  - Therapeutic product effect decreased [Unknown]
  - Fatigue [Unknown]
  - Arthralgia [Unknown]
  - Alopecia [Unknown]
  - Depression [Unknown]
